FAERS Safety Report 7057754-8 (Version None)
Quarter: 2010Q4

REPORT INFORMATION
  Report Type: 
  Country: None (occurrence: None)
  Receive Date: 20101022
  Receipt Date: 20101012
  Transmission Date: 20110411
  Serious: Yes (Hospitalization)
  Sender: FDA-Public Use
  Company Number: US-PFIZER INC-2010129639

PATIENT
  Age: 68 Year
  Sex: Female
  Weight: 90.703 kg

DRUGS (9)
  1. LIPITOR [Suspect]
     Indication: CARDIAC DISORDER
     Dosage: 40 MG, 1X/DAY
     Route: 048
     Dates: start: 20090701
  2. AVAPRO [Concomitant]
     Indication: CARDIAC DISORDER
     Dosage: 150 MG, 1X/DAY
     Route: 048
  3. LANTUS [Concomitant]
     Indication: DIABETES MELLITUS
     Dosage: 68 IU, DAILY AT NIGHT
  4. NEXIUM [Concomitant]
     Indication: GASTROOESOPHAGEAL REFLUX DISEASE
     Dosage: 40 MG,DAILY IN MORNING
     Route: 048
  5. ARMOUR THYROID [Concomitant]
     Indication: HYPOTHYROIDISM
     Dosage: 150 MG, 1X/DAY
     Route: 048
  6. LANOXIN [Concomitant]
     Indication: CARDIAC DISORDER
     Dosage: 0.125 MG, 1X/DAY
     Route: 048
  7. COREG [Concomitant]
     Indication: CARDIAC DISORDER
     Dosage: 12.5 MG, 1X/DAY
     Route: 048
  8. METFORMIN [Concomitant]
     Indication: DIABETES MELLITUS
     Dosage: 500 MG, 2X/DAY
     Route: 048
  9. ACETYLSALICYLIC ACID [Concomitant]
     Indication: CARDIAC DISORDER
     Dosage: 81 MG, 1X/DAY
     Route: 048

REACTIONS (5)
  - ABSCESS INTESTINAL [None]
  - INTESTINAL PERFORATION [None]
  - PRODUCT ODOUR ABNORMAL [None]
  - PRURITUS [None]
  - URTICARIA [None]
